FAERS Safety Report 17072723 (Version 2)
Quarter: 2019Q4

REPORT INFORMATION
  Report Type: Spontaneous
  Country: GB (occurrence: GB)
  Receive Date: 20191125
  Receipt Date: 20191210
  Transmission Date: 20200122
  Serious: No
  Sender: FDA-Public Use
  Company Number: GB-JNJFOC-20191123597

PATIENT
  Age: 50 Year
  Sex: Female

DRUGS (6)
  1. PREDNISOLONE. [Suspect]
     Active Substance: PREDNISOLONE
     Indication: STIFF PERSON SYNDROME
  2. REMICADE [Suspect]
     Active Substance: INFLIXIMAB
     Indication: STIFF PERSON SYNDROME
  3. RITUXIMAB. [Suspect]
     Active Substance: RITUXIMAB
     Indication: CEREBELLAR ATAXIA
     Dosage: SINGLE DOSE
     Route: 065
  4. REMICADE [Suspect]
     Active Substance: INFLIXIMAB
     Indication: CEREBELLAR ATAXIA
     Dosage: 2 DOSES
     Route: 042
  5. PREDNISOLONE. [Suspect]
     Active Substance: PREDNISOLONE
     Indication: CEREBELLAR ATAXIA
     Route: 048
  6. RITUXIMAB. [Suspect]
     Active Substance: RITUXIMAB
     Indication: STIFF PERSON SYNDROME

REACTIONS (3)
  - Drug resistance [Unknown]
  - Off label use [Unknown]
  - Product use in unapproved indication [Unknown]
